FAERS Safety Report 7556896-8 (Version None)
Quarter: 2011Q2

REPORT INFORMATION
  Report Type: 
  Country: None (occurrence: None)
  Receive Date: 20110620
  Receipt Date: 20110603
  Transmission Date: 20111010
  Serious: Yes (Other)
  Sender: FDA-Public Use
  Company Number: US-PFIZER INC-2011121822

PATIENT
  Sex: Female
  Weight: 49.887 kg

DRUGS (4)
  1. NEURONTIN [Suspect]
     Indication: GLOSSOPHARYNGEAL NEURALGIA
     Dosage: 900 MG, 4X/DAY
     Route: 048
  2. PRILOSEC [Concomitant]
     Indication: GASTROOESOPHAGEAL REFLUX DISEASE
     Dosage: 20 MG, 2X/DAY
     Route: 048
  3. PRILOSEC [Concomitant]
     Dosage: 20 MG, 1X/DAY
     Route: 048
  4. NEURONTIN [Suspect]
     Indication: TRIGEMINAL NEURALGIA
     Dosage: 300 MG, 3X/DAY
     Route: 048

REACTIONS (2)
  - MEMORY IMPAIRMENT [None]
  - NEURALGIA [None]
